FAERS Safety Report 11467428 (Version 2)
Quarter: 2015Q3

REPORT INFORMATION
  Report Type: Spontaneous
  Country: GB (occurrence: GB)
  Receive Date: 20150908
  Receipt Date: 20150915
  Transmission Date: 20151125
  Serious: No
  Sender: FDA-Public Use
  Company Number: GB-LUPIN PHARMACEUTICALS INC.-2015-02280

PATIENT
  Sex: Female

DRUGS (1)
  1. CEFALEXIN 250 MG CAPSULES [Suspect]
     Active Substance: CEPHALEXIN
     Indication: URINARY TRACT INFECTION

REACTIONS (2)
  - Exposure during pregnancy [Unknown]
  - Vomiting [Unknown]
